FAERS Safety Report 6719183-3 (Version None)
Quarter: 2010Q2

REPORT INFORMATION
  Report Type: 
  Country: None (occurrence: None)
  Receive Date: 20100510
  Receipt Date: 20100510
  Transmission Date: 20101027
  Serious: Yes (Other)
  Sender: FDA-Public Use
  Company Number: None

PATIENT
  Sex: Male
  Weight: 97.5234 kg

DRUGS (1)
  1. SUBOXONE [Suspect]
     Dosage: 2 MG TWICE A DAY PO
     Route: 048
     Dates: start: 20050301, end: 20100203

REACTIONS (7)
  - BLOOD PRESSURE INCREASED [None]
  - DRUG INEFFECTIVE [None]
  - HEART RATE IRREGULAR [None]
  - HIP ARTHROPLASTY [None]
  - INADEQUATE ANALGESIA [None]
  - SHOULDER OPERATION [None]
  - THERAPEUTIC RESPONSE DECREASED [None]
